FAERS Safety Report 9805649 (Version 2)
Quarter: 2014Q1

REPORT INFORMATION
  Report Type: Report from Study
  Country: US (occurrence: US)
  Receive Date: 20140109
  Receipt Date: 20140305
  Transmission Date: 20141002
  Serious: Yes (Death)
  Sender: FDA-Public Use
  Company Number: US-009507513-1401USA002444

PATIENT
  Age: 50 Year
  Sex: Female

DRUGS (2)
  1. PEGINTRON [Suspect]
     Indication: HEPATITIS C
     Dosage: UNK
  2. REBETOL [Suspect]
     Indication: HEPATITIS C
     Dosage: UNK

REACTIONS (1)
  - Sudden death [Fatal]
